FAERS Safety Report 5520567-X (Version None)
Quarter: 2007Q4

REPORT INFORMATION
  Report Type: 
  Country: None (occurrence: None)
  Receive Date: 20071119
  Receipt Date: 20071106
  Transmission Date: 20080405
  Serious: Yes (Other)
  Sender: FDA-Public Use
  Company Number: US-PFIZER INC-2007071771

PATIENT
  Sex: Female
  Weight: 125 kg

DRUGS (12)
  1. LYRICA [Suspect]
     Indication: DIABETES MELLITUS
     Route: 048
     Dates: start: 20060130, end: 20060101
  2. LYRICA [Suspect]
     Indication: DIABETIC NEUROPATHY
  3. LYRICA [Suspect]
     Indication: NEUROPATHY PERIPHERAL
  4. LYRICA [Suspect]
     Indication: FIBROMYALGIA
  5. LOTREL [Concomitant]
     Indication: HYPERTENSION
     Dosage: TEXT:10/20MG
  6. CELEXA [Concomitant]
  7. TRAZODONE HCL [Concomitant]
  8. ARTHROTEC [Concomitant]
  9. BUSPAR [Concomitant]
  10. ACTOS [Concomitant]
  11. PREVACID [Concomitant]
  12. CYMBALTA [Concomitant]

REACTIONS (4)
  - ACTIVITIES OF DAILY LIVING IMPAIRED [None]
  - DIZZINESS [None]
  - DRUG INTOLERANCE [None]
  - WEIGHT INCREASED [None]
